FAERS Safety Report 7964470-4 (Version None)
Quarter: 2011Q4

REPORT INFORMATION
  Report Type: 
  Country: None (occurrence: None)
  Receive Date: 20111208
  Receipt Date: 20111128
  Transmission Date: 20120403
  Serious: Yes (Hospitalization, Disabling)
  Sender: FDA-Public Use
  Company Number: US-BAYER-2011-048280

PATIENT
  Age: 18 Year
  Sex: Female
  Weight: 63.492 kg

DRUGS (9)
  1. CIPROFLOXACIN [Concomitant]
     Indication: INFECTION
     Dosage: 500 MG, UNK
     Route: 048
     Dates: start: 20090507
  2. YASMIN [Suspect]
     Indication: CONTRACEPTION
     Dosage: UNK
     Dates: start: 20080401, end: 20090501
  3. PROTEINS NOS [Concomitant]
     Dosage: UNK UNK, BIW
     Route: 048
  4. MOTRIN [Concomitant]
     Indication: PAIN
     Dosage: UNK UNK, PRN
     Route: 048
  5. IRON [IRON] [Concomitant]
     Dosage: UNK
     Route: 048
     Dates: start: 20090401, end: 20090801
  6. ALBUTEROL [Concomitant]
     Indication: ASTHMA EXERCISE INDUCED
     Dosage: 2 DF, PRN
     Route: 055
     Dates: start: 20090501
  7. IRON [IRON] [Concomitant]
     Indication: IRON DEFICIENCY ANAEMIA
     Dosage: UNK
     Route: 048
     Dates: start: 20090101
  8. DROSPIRENONE AND ETHINYL ESTRADIOL [Suspect]
     Indication: CONTRACEPTION
     Dosage: UNK
     Dates: start: 20080401, end: 20090501
  9. NAPROXEN [Concomitant]
     Indication: PAIN
     Dosage: 500 MG, UNK
     Route: 048
     Dates: start: 20090307

REACTIONS (8)
  - PAIN [None]
  - DEEP VEIN THROMBOSIS [None]
  - PULMONARY EMBOLISM [None]
  - INJURY [None]
  - ANHEDONIA [None]
  - ANXIETY [None]
  - DEPRESSION [None]
  - EATING DISORDER [None]
